FAERS Safety Report 11504515 (Version 8)
Quarter: 2018Q1

REPORT INFORMATION
  Report Type: Report from Study
  Country: US (occurrence: US)
  Receive Date: 20150915
  Receipt Date: 20180313
  Transmission Date: 20180508
  Serious: Yes (Hospitalization)
  Sender: FDA-Public Use
  Company Number: US-PFIZER INC-2015297754

PATIENT
  Age: 68 Year
  Sex: Female
  Weight: 70.5 kg

DRUGS (8)
  1. LISINOPRIL. [Concomitant]
     Active Substance: LISINOPRIL
     Indication: HYPERTENSION
     Dosage: 20 MG, 1X/DAY QD
     Route: 048
     Dates: start: 20141030
  2. FOLIC ACID. [Concomitant]
     Active Substance: FOLIC ACID
     Indication: RHEUMATOID ARTHRITIS
     Dosage: 1 MG, 1X/DAY (QD)
     Route: 048
     Dates: start: 20081206
  3. OMEPRAZOLE. [Concomitant]
     Active Substance: OMEPRAZOLE
     Indication: GASTROOESOPHAGEAL REFLUX DISEASE
     Dosage: 20 MG, 2X/DAY (BID)
     Route: 048
     Dates: start: 20140310
  4. ALENDRONATE SODIUM. [Concomitant]
     Active Substance: ALENDRONATE SODIUM
     Indication: OSTEOPOROSIS
     Dosage: 70 MG, 1X/DAY (QD)
     Route: 048
     Dates: start: 2012
  5. FLONASE [Concomitant]
     Active Substance: FLUTICASONE PROPIONATE
     Indication: ALLERGIC SINUSITIS
     Dosage: 50 MG, AS NEEDED
     Dates: start: 2010
  6. TOFACITINIB CITRATE [Suspect]
     Active Substance: TOFACITINIB CITRATE
     Indication: RHEUMATOID ARTHRITIS
     Dosage: 5 MG, 2X/DAY
     Route: 048
     Dates: start: 20150423, end: 20150623
  7. METHOTREXATE SODIUM. [Suspect]
     Active Substance: METHOTREXATE SODIUM
     Indication: RHEUMATOID ARTHRITIS
     Dosage: 25 MG WEEKLY (QW)
     Route: 048
     Dates: start: 20081206, end: 20150627
  8. HYDRALAZINE [Concomitant]
     Active Substance: HYDRALAZINE HYDROCHLORIDE
     Indication: HYPERTENSION
     Dosage: 50 MG, 1X/DAY QD
     Route: 048
     Dates: start: 20140310

REACTIONS (2)
  - Herpes zoster [Recovered/Resolved]
  - Facial paralysis [Recovered/Resolved]

NARRATIVE: CASE EVENT DATE: 20150623
